FAERS Safety Report 8924729 (Version 1)
Quarter: 2012Q4

REPORT INFORMATION
  Report Type: 
  Country: JP (occurrence: JP)
  Receive Date: 20121126
  Receipt Date: 20121126
  Transmission Date: 20130627
  Serious: Yes (Other)
  Sender: FDA-Public Use
  Company Number: JP-009507513-1211JPN009739

PATIENT
  Age: 54 Year
  Sex: Female

DRUGS (2)
  1. ZETIA [Suspect]
     Indication: DYSLIPIDAEMIA
     Dosage: 5 mg, qd
     Route: 048
     Dates: start: 20121012
  2. BEZATOL SR [Suspect]
     Indication: DYSLIPIDAEMIA
     Dosage: 200 mg, UNK
     Route: 048
     Dates: start: 20121012

REACTIONS (1)
  - Accommodation disorder [Unknown]
